FAERS Safety Report 4489715-7 (Version None)
Quarter: 2004Q4

REPORT INFORMATION
  Report Type: 
  Country: None (occurrence: None)
  Receive Date: 20041101
  Receipt Date: 20030108
  Transmission Date: 20050328
  Serious: Yes (Life-Threatening, Disabling, Other)
  Sender: FDA-Public Use
  Company Number: US-MERCK-0301USA00587

PATIENT
  Age: 76 Year
  Sex: Male

DRUGS (6)
  1. ZOCOR [Suspect]
     Indication: BLOOD CHOLESTEROL INCREASED
     Route: 048
     Dates: start: 19991001, end: 20000201
  2. ZOCOR [Suspect]
     Route: 048
     Dates: start: 20000201, end: 20000601
  3. ZOCOR [Suspect]
     Route: 048
     Dates: start: 20000601, end: 20000801
  4. XANAX [Concomitant]
     Route: 065
  5. ASPIRIN [Concomitant]
     Route: 065
  6. ANALGESIC OR ANESTHETIC (UNSPECIFIED) [Concomitant]
     Route: 065

REACTIONS (7)
  - BLINDNESS [None]
  - CONSTIPATION [None]
  - EYE HAEMORRHAGE [None]
  - GASTRITIS [None]
  - HEPATOCELLULAR DAMAGE [None]
  - RENAL DISORDER [None]
  - RETINAL VEIN OCCLUSION [None]
